FAERS Safety Report 17943797 (Version 2)
Quarter: 2020Q3

REPORT INFORMATION
  Report Type: Other
  Country: US (occurrence: US)
  Receive Date: 20200625
  Receipt Date: 20200714
  Transmission Date: 20201103
  Serious: Yes (Hospitalization, Other)
  Sender: FDA-Public Use
  Company Number: US-ROCHE-2627386

PATIENT
  Age: 67 Year
  Sex: Female

DRUGS (8)
  1. SIMVASTATIN. [Concomitant]
     Active Substance: SIMVASTATIN
  2. OCREVUS [Suspect]
     Active Substance: OCRELIZUMAB
     Indication: SECONDARY PROGRESSIVE MULTIPLE SCLEROSIS
     Dosage: SUBSEQUENT DOSE: 27/FEB/2019, 27/AUG/2019, 03/MAR/2020
     Route: 042
     Dates: start: 20180221
  3. SITAGLIPTIN [Concomitant]
     Active Substance: SITAGLIPTIN
  4. LISINOPRIL. [Concomitant]
     Active Substance: LISINOPRIL
  5. DALFAMPRIDINE. [Concomitant]
     Active Substance: DALFAMPRIDINE
     Indication: WALKING DISABILITY
  6. INSULIN GLARGINE [Concomitant]
     Active Substance: INSULIN GLARGINE
     Indication: TYPE 2 DIABETES MELLITUS
  7. CLOPIDOGREL [Concomitant]
     Active Substance: CLOPIDOGREL BISULFATE
  8. LEVOTHYROXINE. [Concomitant]
     Active Substance: LEVOTHYROXINE

REACTIONS (3)
  - Escherichia infection [Recovered/Resolved]
  - Sepsis [Recovered/Resolved]
  - White blood cell count increased [Recovered/Resolved]

NARRATIVE: CASE EVENT DATE: 201910
